FAERS Safety Report 22908488 (Version 2)
Quarter: 2023Q4

REPORT INFORMATION
  Report Type: Spontaneous
  Country: US (occurrence: US)
  Receive Date: 20230905
  Receipt Date: 20231023
  Transmission Date: 20240110
  Serious: No
  Sender: FDA-Public Use
  Company Number: US-PFIZER INC-202300290345

PATIENT
  Age: 91 Year
  Sex: Female
  Weight: 118 kg

DRUGS (1)
  1. BOSULIF [Suspect]
     Active Substance: BOSUTINIB MONOHYDRATE
     Indication: Blood disorder
     Dosage: 200 MG, DAILY (2-100 MG. DAILY)
     Dates: start: 202301

REACTIONS (1)
  - Illness [Unknown]
